FAERS Safety Report 7294849-8 (Version None)
Quarter: 2011Q1

REPORT INFORMATION
  Report Type: 
  Country: None (occurrence: None)
  Receive Date: 20110216
  Receipt Date: 20110208
  Transmission Date: 20110831
  Serious: Yes (Other)
  Sender: FDA-Public Use
  Company Number: US-AMGEN-USASP2010004843

PATIENT
  Age: 81 Year
  Sex: Female
  Weight: 66.667 kg

DRUGS (16)
  1. FOLIC ACID [Concomitant]
     Dosage: 400 A?G, QD
  2. ASPIRIN [Concomitant]
     Dosage: UNK
     Dates: end: 20101008
  3. SIMVASTATIN [Concomitant]
     Dosage: 10 MG, UNK
  4. VITAMIN A [Concomitant]
     Dosage: 4000 IU, QD
  5. ARICEPT                            /01318901/ [Concomitant]
     Dosage: 10 MG, QD
  6. DIOVAN [Concomitant]
     Dosage: 160 MG, QD
  7. CALCIUM [Concomitant]
     Dosage: UNK UNK, BID
  8. PROCRIT [Suspect]
     Indication: ANAEMIA
     Dosage: UNK
  9. OXCARBAZEPINE [Concomitant]
     Dosage: 300 MG, BID
  10. DOCUSATE [Concomitant]
  11. VICODIN [Concomitant]
     Dosage: UNK UNK, PRN
  12. ZOLOFT [Concomitant]
     Dosage: 75 MG, QD
  13. CLONAZEPAM [Concomitant]
     Dosage: 0.5 UNK, UNK
  14. FERROUS GLUCONATE [Concomitant]
     Dosage: 324 MG, BID
  15. NAMENDA [Concomitant]
  16. OXCARBAZEPINE [Concomitant]
     Dosage: 150 MG, BID

REACTIONS (3)
  - APLASIA PURE RED CELL [None]
  - HOSPICE CARE [None]
  - RENAL DISORDER [None]
